FAERS Safety Report 5017818-7 (Version None)
Quarter: 2006Q2

REPORT INFORMATION
  Report Type: 
  Country: None (occurrence: None)
  Receive Date: 20060530
  Receipt Date: 20060518
  Transmission Date: 20061013
  Serious: Yes (Other)
  Sender: FDA-Public Use
  Company Number: 2005117830

PATIENT
  Age: 83 Year
  Sex: Female
  Weight: 54.4316 kg

DRUGS (8)
  1. DETROL LA [Suspect]
     Indication: INCONTINENCE
     Dosage: 1 D
     Dates: start: 20050101
  2. CELEBREX [Concomitant]
  3. ASPIRIN [Concomitant]
  4. ACTINAL (CYPROHEPTADINE  HYDROCHLORIDE) [Concomitant]
  5. KLOR-CON [Concomitant]
  6. DYAZIDE [Concomitant]
  7. RESERPINE [Concomitant]
  8. ATENOLOL [Concomitant]

REACTIONS (6)
  - BLOOD PRESSURE FLUCTUATION [None]
  - CONSTIPATION [None]
  - DEMENTIA [None]
  - DRY MOUTH [None]
  - ECONOMIC PROBLEM [None]
  - HEART RATE INCREASED [None]
